FAERS Safety Report 17359404 (Version 1)
Quarter: 2020Q1

REPORT INFORMATION
  Report Type: Spontaneous
  Country: US (occurrence: US)
  Receive Date: 20200203
  Receipt Date: 20200203
  Transmission Date: 20200409
  Serious: Yes (Other)
  Sender: FDA-Public Use
  Company Number: US-LUPIN PHARMACEUTICALS INC.-2020-00428

PATIENT
  Age: 72 Year
  Sex: Female

DRUGS (1)
  1. TRIAMCINOLONE [Suspect]
     Active Substance: TRIAMCINOLONE
     Indication: PRODUCT USED FOR UNKNOWN INDICATION
     Dosage: UNK (INJECTION)
     Route: 065

REACTIONS (4)
  - Macular ischaemia [Unknown]
  - Retinal artery occlusion [Not Recovered/Not Resolved]
  - Ophthalmic artery thrombosis [Not Recovered/Not Resolved]
  - Corneal oedema [Recovering/Resolving]
